FAERS Safety Report 19453316 (Version 2)
Quarter: 2021Q3

REPORT INFORMATION
  Report Type: Report from Study
  Country: US (occurrence: US)
  Receive Date: 20210623
  Receipt Date: 20210713
  Transmission Date: 20211014
  Serious: No
  Sender: FDA-Public Use
  Company Number: NVSC2021US134260

PATIENT
  Age: 64 Year
  Sex: Female

DRUGS (2)
  1. GLATOPA [Suspect]
     Active Substance: GLATIRAMER ACETATE
     Indication: PRODUCT USED FOR UNKNOWN INDICATION
     Dosage: UNK
     Route: 058
     Dates: start: 201811
  2. GLATOPA [Suspect]
     Active Substance: GLATIRAMER ACETATE
     Dosage: UNK
     Route: 058

REACTIONS (7)
  - Chills [Unknown]
  - Neck pain [Unknown]
  - Dyspnoea [Unknown]
  - Flushing [Unknown]
  - Cough [Unknown]
  - Injection site rash [Unknown]
  - Dysphonia [Unknown]

NARRATIVE: CASE EVENT DATE: 20210611
